FAERS Safety Report 7348035-3 (Version None)
Quarter: 2011Q1

REPORT INFORMATION
  Report Type: 
  Country: None (occurrence: None)
  Receive Date: 20110302
  Receipt Date: 20110218
  Transmission Date: 20110831
  Serious: Yes (Hospitalization)
  Sender: FDA-Public Use
  Company Number: 2011000828

PATIENT
  Age: 67 Year
  Sex: Male

DRUGS (6)
  1. DOCETAXEL [Suspect]
     Indication: NON-SMALL CELL LUNG CANCER
     Dosage: (75 MG/M2, 1 IN 21 D), INTRAVENOUS
     Route: 042
     Dates: start: 20110212
  2. DEFLAMON (METRONIDAZOLE) [Concomitant]
  3. GRANULOKINE [Concomitant]
  4. URBASON (METHYLPREDISOLONE) [Concomitant]
  5. ERLOTINIB (ERLOTINIB) (TABLET) (ERLOTINIB) [Suspect]
     Indication: NON-SMALL CELL LUNG CANCER
     Dosage: 150 MG, QD, ORAL
     Route: 048
     Dates: start: 20110212
  6. ATENOLOL [Concomitant]

REACTIONS (1)
  - FEBRILE NEUTROPENIA [None]
